FAERS Safety Report 14625253 (Version 2)
Quarter: 2018Q2

REPORT INFORMATION
  Report Type: Spontaneous
  Country: NO (occurrence: NO)
  Receive Date: 20180312
  Receipt Date: 20180504
  Transmission Date: 20180711
  Serious: Yes (Other)
  Sender: FDA-Public Use
  Company Number: NO-AMGEN-NORSP2018025751

PATIENT
  Age: 77 Year
  Sex: Female
  Weight: 94 kg

DRUGS (5)
  1. TENORMIN [Concomitant]
     Active Substance: ATENOLOL
     Dosage: 25 MG, BID
  2. REPATHA [Suspect]
     Active Substance: EVOLOCUMAB
     Indication: TYPE IIA HYPERLIPIDAEMIA
     Dosage: 140 MG, Q2WK
     Route: 058
     Dates: start: 20170710, end: 20170912
  3. COZAAR [Concomitant]
     Active Substance: LOSARTAN POTASSIUM
     Dosage: 50 MG, QD
  4. ALBYL-E [Concomitant]
     Active Substance: ASPIRIN\MAGNESIUM OXIDE
     Dosage: 75 MG, QD
  5. VIVAL [Concomitant]
     Active Substance: DIAZEPAM
     Dosage: 5 MG, AS NECESSARY

REACTIONS (13)
  - Chest pain [Unknown]
  - Swelling [Unknown]
  - Asthenia [Unknown]
  - Glossodynia [Recovered/Resolved]
  - Headache [Unknown]
  - Tachycardia [Unknown]
  - Dizziness [Unknown]
  - Diarrhoea [Unknown]
  - Pharyngeal oedema [Recovered/Resolved]
  - Erythema [Unknown]
  - Wheezing [Unknown]
  - Abdominal pain [Unknown]
  - Dyspnoea [Unknown]

NARRATIVE: CASE EVENT DATE: 20170829
